FAERS Safety Report 7945290-3 (Version None)
Quarter: 2011Q4

REPORT INFORMATION
  Report Type: 
  Country: None (occurrence: None)
  Receive Date: 20111129
  Receipt Date: 20101207
  Transmission Date: 20120403
  Serious: No
  Sender: FDA-Public Use
  Company Number: US-GLAXOSMITHKLINE-A0898386A

PATIENT
  Age: 53 Year
  Sex: Male

DRUGS (3)
  1. METFORMIN HCL [Concomitant]
  2. INSULIN [Concomitant]
  3. WELLBUTRIN SR [Suspect]
     Indication: DEPRESSION
     Dosage: 150MG TWICE PER DAY
     Route: 048
     Dates: start: 20101130

REACTIONS (6)
  - DISTURBANCE IN ATTENTION [None]
  - DECREASED APPETITE [None]
  - MENTAL IMPAIRMENT [None]
  - FLIGHT OF IDEAS [None]
  - MALAISE [None]
  - LIBIDO DECREASED [None]
